FAERS Safety Report 10483864 (Version 1)
Quarter: 2014Q3

REPORT INFORMATION
  Report Type: Spontaneous
  Country: US (occurrence: None)
  Receive Date: 20140929
  Receipt Date: 20140929
  Transmission Date: 20150326
  Serious: Yes (Life-Threatening)
  Sender: FDA-Public Use
  Company Number: None

PATIENT
  Age: 51 Year
  Sex: Female
  Weight: 50.8 kg

DRUGS (1)
  1. MAGNESIUM SULFATE [Suspect]
     Active Substance: MAGNESIUM SULFATE
     Indication: BLOOD MAGNESIUM ABNORMAL
     Route: 042
     Dates: start: 20140924, end: 20140925

REACTIONS (6)
  - Product compounding quality issue [None]
  - Pain [None]
  - Dizziness [None]
  - Flushing [None]
  - Blood magnesium increased [None]
  - Infusion related reaction [None]

NARRATIVE: CASE EVENT DATE: 20140925
